FAERS Safety Report 6738159-3 (Version None)
Quarter: 2010Q2

REPORT INFORMATION
  Report Type: 
  Country: None (occurrence: None)
  Receive Date: 20100524
  Receipt Date: 20100506
  Transmission Date: 20101027
  Serious: No
  Sender: FDA-Public Use
  Company Number: JP-ASTRAZENECA-2010SE10766

PATIENT
  Age: 25122 Day
  Sex: Male

DRUGS (2)
  1. CRESTOR [Suspect]
     Indication: HYPERCHOLESTEROLAEMIA
     Route: 048
     Dates: start: 20100204, end: 20100220
  2. ZANTAC [Concomitant]
     Route: 048
     Dates: start: 20100204

REACTIONS (1)
  - HERPES SIMPLEX OTITIS EXTERNA [None]
